FAERS Safety Report 8380744-X (Version None)
Quarter: 2012Q2

REPORT INFORMATION
  Report Type: 
  Country: None (occurrence: None)
  Receive Date: 20120523
  Receipt Date: 20120518
  Transmission Date: 20120825
  Serious: No
  Sender: FDA-Public Use
  Company Number: US-PFIZER INC-2012121418

PATIENT
  Sex: Male
  Weight: 111 kg

DRUGS (1)
  1. DEPO-TESTOSTERONE [Suspect]
     Indication: ORCHIDECTOMY
     Dosage: 200 MG/ML, UNK

REACTIONS (4)
  - ABDOMINAL PAIN UPPER [None]
  - MALAISE [None]
  - FEELING HOT [None]
  - GASTROOESOPHAGEAL REFLUX DISEASE [None]
